FAERS Safety Report 10611942 (Version 1)
Quarter: 2014Q4

REPORT INFORMATION
  Report Type: Spontaneous
  Country: US (occurrence: US)
  Receive Date: 20141126
  Receipt Date: 20141126
  Transmission Date: 20150529
  Serious: Yes (Other)
  Sender: FDA-Public Use
  Company Number: US-PFIZER INC-2014321443

PATIENT
  Age: 19 Year
  Sex: Male

DRUGS (1)
  1. ROBITUSSIN LINGERING COLD LONG-ACTING COUGH GELS [Suspect]
     Active Substance: DEXTROMETHORPHAN HYDROBROMIDE
     Indication: EUPHORIC MOOD
     Dosage: UNK

REACTIONS (6)
  - Eye disorder [Unknown]
  - Drug abuse [Unknown]
  - Sleep disorder [Unknown]
  - Suicidal ideation [Unknown]
  - Dysarthria [Unknown]
  - Aphasia [Unknown]
